FAERS Safety Report 4328369-7 (Version None)
Quarter: 2004Q1

REPORT INFORMATION
  Report Type: 
  Country: None (occurrence: None)
  Receive Date: 20040331
  Receipt Date: 20040323
  Transmission Date: 20041129
  Serious: Yes (Other)
  Sender: FDA-Public Use
  Company Number: PHBS2004FI03967

PATIENT
  Age: 48 Year
  Sex: Male

DRUGS (7)
  1. LESCOL [Suspect]
     Indication: HYPERCHOLESTEROLAEMIA
     Dosage: 80 MG/DAY
     Route: 048
     Dates: start: 20030907, end: 20030914
  2. PRIMASPAN [Concomitant]
     Indication: CORONARY ARTERY DISEASE
     Dosage: 100 MG/DAY
     Route: 048
     Dates: start: 20030907
  3. PLAVIX [Concomitant]
     Indication: CORONARY ARTERY DISEASE
     Dosage: 75 MG/DAY
     Route: 048
     Dates: start: 20030907
  4. PULMICORT [Concomitant]
     Indication: ASTHMA
     Dosage: 400 UG/DAY
  5. OXIS [Concomitant]
     Indication: ASTHMA
     Dosage: 6 UG, PRN
  6. BRICANYL [Concomitant]
     Indication: ASTHMA
     Dosage: .25 MG, PRN
  7. NASONEX [Concomitant]
     Indication: RHINITIS
     Dosage: UNK, UNK
     Route: 045

REACTIONS (5)
  - BIOPSY MUSCLE ABNORMAL [None]
  - BLOOD CREATINE PHOSPHOKINASE INCREASED [None]
  - MUSCLE CRAMP [None]
  - MYALGIA [None]
  - MYOSITIS [None]
